FAERS Safety Report 4879316-0 (Version None)
Quarter: 2006Q1

REPORT INFORMATION
  Report Type: 
  Country: None (occurrence: None)
  Receive Date: 20060112
  Receipt Date: 20050228
  Transmission Date: 20060701
  Serious: Yes (Hospitalization, Other)
  Sender: FDA-Public Use
  Company Number: US-MERCK-0503USA00229

PATIENT
  Age: 68 Year
  Sex: Female
  Weight: 77 kg

DRUGS (22)
  1. VIOXX [Suspect]
     Indication: ARTHRITIS
     Route: 048
     Dates: start: 20001201, end: 20020101
  2. VIOXX [Suspect]
     Route: 048
     Dates: start: 20020121, end: 20040601
  3. PROTONIX [Concomitant]
     Route: 065
  4. [THERAPY UNSPECIFIED] [Concomitant]
     Route: 065
  5. MAGNESIUM (UNSPECIFIED) [Concomitant]
     Route: 065
  6. IRON (UNSPECIFIED) [Concomitant]
     Route: 065
  7. CALCIUM (UNSPECIFIED) [Concomitant]
     Route: 065
  8. ZANTAC [Concomitant]
     Route: 065
  9. PRILOSEC [Concomitant]
     Route: 065
  10. LEVOXYL [Concomitant]
     Route: 065
  11. PREMPRO [Concomitant]
     Route: 065
  12. NADOLOL [Concomitant]
     Route: 065
  13. PROPULSID [Concomitant]
     Route: 065
  14. LASIX [Concomitant]
     Route: 065
  15. SYNTHROID [Concomitant]
     Route: 065
  16. POTASSIUM (UNSPECIFIED) [Concomitant]
     Route: 065
  17. MEVLOR [Concomitant]
     Route: 048
  18. ASPIRIN [Concomitant]
     Route: 065
  19. TRIAMTERENE [Concomitant]
     Route: 065
  20. VOLTAREN [Concomitant]
     Route: 065
  21. CELEBREX [Concomitant]
     Route: 065
  22. ASACOL [Concomitant]
     Route: 065

REACTIONS (50)
  - ABDOMINAL PAIN [None]
  - ACUTE PRERENAL FAILURE [None]
  - ANAEMIA [None]
  - ANGINA PECTORIS [None]
  - ARTERIOSCLEROSIS [None]
  - ARTHRALGIA [None]
  - BACK PAIN [None]
  - BLOOD CHOLESTEROL INCREASED [None]
  - BLOOD CREATININE INCREASED [None]
  - BLOOD TRIGLYCERIDES INCREASED [None]
  - BURSITIS [None]
  - CARDIOMEGALY [None]
  - CHEST DISCOMFORT [None]
  - COLITIS [None]
  - CORONARY ARTERY DISEASE [None]
  - DIFFICULTY IN WALKING [None]
  - DYSPNOEA [None]
  - DYSPNOEA EXERTIONAL [None]
  - ELECTROCARDIOGRAM T WAVE ABNORMAL [None]
  - FACIAL PAIN [None]
  - FAECES DISCOLOURED [None]
  - FASCIITIS [None]
  - GASTRIC PERFORATION [None]
  - GASTROINTESTINAL HAEMORRHAGE [None]
  - HAEMATURIA [None]
  - HEADACHE [None]
  - HERPES ZOSTER OPHTHALMIC [None]
  - HYPERTENSION [None]
  - INJURY [None]
  - LARGE INTESTINAL ULCER [None]
  - LOW DENSITY LIPOPROTEIN INCREASED [None]
  - LUNG DISORDER [None]
  - LUNG NEOPLASM [None]
  - MYDRIASIS [None]
  - MYOCARDIAL INFARCTION [None]
  - MYOCARDIAL ISCHAEMIA [None]
  - OSTEOARTHRITIS [None]
  - PAIN IN EXTREMITY [None]
  - PALPITATIONS [None]
  - PLANTAR FASCIITIS [None]
  - PNEUMONIA [None]
  - PSORIASIS [None]
  - PSORIATIC ARTHROPATHY [None]
  - RASH [None]
  - RENAL DISORDER [None]
  - RENAL IMPAIRMENT [None]
  - SKIN LESION EXCISION [None]
  - SQUAMOUS CELL CARCINOMA [None]
  - URINARY TRACT INFECTION [None]
  - VOMITING [None]
